FAERS Safety Report 22096084 (Version 13)
Quarter: 2024Q1

REPORT INFORMATION
  Report Type: Report from Study
  Country: US (occurrence: US)
  Receive Date: 20230315
  Receipt Date: 20240115
  Transmission Date: 20240410
  Serious: Yes (Hospitalization)
  Sender: FDA-Public Use
  Company Number: US-ABBVIE-4328571

PATIENT
  Sex: Male

DRUGS (6)
  1. VENCLEXTA [Suspect]
     Active Substance: VENETOCLAX
     Indication: Chronic lymphocytic leukaemia
     Dosage: FORM STRENGTH: 100 MILLIGRAM
     Route: 048
  2. VENCLEXTA [Suspect]
     Active Substance: VENETOCLAX
     Indication: Chronic lymphocytic leukaemia
     Dosage: 4 TABLETS BY MOUTH ONCE DAILY WITH FOOD AND A FULL GLASS OF WATER?FORM STRENGTH: 100 MILLIGRAM
     Route: 048
  3. VENCLEXTA [Suspect]
     Active Substance: VENETOCLAX
     Indication: Chronic lymphocytic leukaemia
     Dosage: TAKE 2 TABLETS BY MOUTH ONCE DAILY WITH FOOD AND A FULL GLASS OF WATER, FORM STRENGTH: 100 MILLIG...
     Route: 048
     Dates: end: 20231128
  4. VENCLEXTA [Suspect]
     Active Substance: VENETOCLAX
     Indication: Chronic lymphocytic leukaemia
     Dosage: FORM STRENGTH: 100 MILLIGRAM,  TAKE 2 TABLETS WITH FOOD AND A FULL GLASS OF WATER
     Route: 048
     Dates: start: 20231207, end: 20231207
  5. VENCLEXTA [Suspect]
     Active Substance: VENETOCLAX
     Indication: Chronic lymphocytic leukaemia
     Dosage: FORM STRENGTH WAS 100 MILLIGRAM, TAKE 2 TABLETS WITH FOOD AND A FULL GLASS OF WATER, LAST ADMIN D...
     Route: 048
     Dates: start: 20231210
  6. COVID-19 VACCINE NOS [Suspect]
     Active Substance: COVID-19 VACCINE NOS
     Indication: COVID-19 immunisation
     Dosage: TIME INTERVAL: TOTAL
     Route: 030

REACTIONS (27)
  - Abscess jaw [Unknown]
  - Dry skin [Unknown]
  - Brain fog [Recovering/Resolving]
  - White blood cell count decreased [Recovering/Resolving]
  - Laboratory test abnormal [Unknown]
  - Neutrophil count decreased [Unknown]
  - Nausea [Unknown]
  - Chronic obstructive pulmonary disease [Unknown]
  - Lethargy [Recovering/Resolving]
  - Diarrhoea [Recovering/Resolving]
  - Alopecia [Recovering/Resolving]
  - Temperature intolerance [Unknown]
  - Gingivitis [Recovering/Resolving]
  - Erythema [Unknown]
  - Myalgia [Not Recovered/Not Resolved]
  - Neutrophil count abnormal [Recovering/Resolving]
  - Fatigue [Recovering/Resolving]
  - Localised infection [Recovering/Resolving]
  - Infection [Recovering/Resolving]
  - Pain in extremity [Unknown]
  - Confusional state [Unknown]
  - Tremor [Recovering/Resolving]
  - Pruritus [Unknown]
  - Pyrexia [Recovering/Resolving]
  - Malaise [Recovering/Resolving]
  - Pyrexia [Recovered/Resolved]
  - Pain [Unknown]

NARRATIVE: CASE EVENT DATE: 20220101
